FAERS Safety Report 11108975 (Version 2)
Quarter: 2015Q3

REPORT INFORMATION
  Report Type: Spontaneous
  Country: US (occurrence: None)
  Receive Date: 20150511
  Receipt Date: 20150723
  Transmission Date: 20151125
  Serious: Yes (Hospitalization, Other)
  Sender: FDA-Public Use
  Company Number: ADR-2015-00913

PATIENT
  Age: 49 Year
  Sex: Male

DRUGS (1)
  1. BACLOFEN INTRATHECAL [Suspect]
     Active Substance: BACLOFEN
     Indication: MUSCLE SPASTICITY

REACTIONS (8)
  - Rib fracture [None]
  - Feeling abnormal [None]
  - Overdose [None]
  - Muscle spasticity [None]
  - Back pain [None]
  - Pain in extremity [None]
  - Condition aggravated [None]
  - Fall [None]
